FAERS Safety Report 9963991 (Version 2)
Quarter: 2014Q1

REPORT INFORMATION
  Report Type: Spontaneous
  Country: US (occurrence: US)
  Receive Date: 20140305
  Receipt Date: 20140318
  Transmission Date: 20141002
  Serious: Yes (Life-Threatening, Hospitalization)
  Sender: FDA-Public Use
  Company Number: US-ACTELION-A-US2014-95466

PATIENT
  Age: 66 Year
  Sex: Female

DRUGS (11)
  1. TRACLEER [Suspect]
     Indication: PULMONARY ARTERIAL HYPERTENSION
     Dosage: 125 MG, BID
     Route: 048
     Dates: start: 20060208
  2. TRACLEER [Suspect]
     Dosage: 62.5 MG, BID
     Route: 048
     Dates: start: 20051129, end: 20060207
  3. COUMADIN [Concomitant]
  4. AMLODIPINE [Concomitant]
     Dosage: 10 MG, QD
  5. ALPHAGAN [Concomitant]
     Dosage: UNK
     Route: 047
  6. EZETIMIBE [Concomitant]
     Dosage: 10 MG, QD
  7. METFORMIN [Concomitant]
     Indication: ESSENTIAL HYPERTENSION
     Dosage: 850 MG, TID
  8. VALSARTAN [Concomitant]
     Dosage: 325 MG, QD
  9. WARFARIN [Concomitant]
     Dosage: 15 MG, QD
  10. CLONIDINE [Concomitant]
     Dosage: 0.1 MG, UNK
  11. VITAMIN D [Concomitant]
     Dosage: UNK

REACTIONS (9)
  - Atrial flutter [Recovering/Resolving]
  - Pulmonary embolism [Recovering/Resolving]
  - Deep vein thrombosis [Recovering/Resolving]
  - Renal failure acute [Recovering/Resolving]
  - Labile hypertension [Recovering/Resolving]
  - Pulmonary hypertension [Recovering/Resolving]
  - Oedema [Recovering/Resolving]
  - Dyspnoea [Recovering/Resolving]
  - Pulmonary arterial pressure increased [Recovering/Resolving]
